FAERS Safety Report 7943949-5 (Version None)
Quarter: 2011Q4

REPORT INFORMATION
  Report Type: 
  Country: None (occurrence: None)
  Receive Date: 20111128
  Receipt Date: 20111117
  Transmission Date: 20120403
  Serious: Yes (Other)
  Sender: FDA-Public Use
  Company Number: US-ASTRAZENECA-2010SE20371

PATIENT
  Age: 40 Year
  Sex: Female

DRUGS (3)
  1. NEXIUM [Suspect]
     Route: 048
  2. PREVACID [Concomitant]
  3. PRILOSEC [Suspect]
     Route: 048

REACTIONS (10)
  - REGURGITATION [None]
  - GASTRIC DISORDER [None]
  - THROAT IRRITATION [None]
  - VOMITING [None]
  - DRUG DOSE OMISSION [None]
  - CEREBRAL HAEMORRHAGE [None]
  - INADEQUATE DIET [None]
  - DYSPEPSIA [None]
  - MALAISE [None]
  - DRUG INEFFECTIVE [None]
